FAERS Safety Report 5306551-X (Version None)
Quarter: 2007Q2

REPORT INFORMATION
  Report Type: 
  Country: None (occurrence: None)
  Receive Date: 20070424
  Receipt Date: 20070416
  Transmission Date: 20071010
  Serious: Yes (Hospitalization, Other)
  Sender: FDA-Public Use
  Company Number: JP-PFIZER INC-2007015342

PATIENT
  Sex: Female
  Weight: 43 kg

DRUGS (15)
  1. GABAPEN [Suspect]
     Indication: TRIGEMINAL NEURALGIA
     Route: 048
     Dates: start: 20061102, end: 20070115
  2. HALCION [Concomitant]
     Route: 048
  3. ADALAT [Concomitant]
     Route: 048
  4. VALSARTAN [Concomitant]
     Route: 048
     Dates: end: 20061119
  5. AMLODIN [Concomitant]
     Route: 048
     Dates: end: 20061119
  6. PAXIL [Concomitant]
     Route: 048
  7. SERMION [Concomitant]
     Route: 048
  8. GASLON [Concomitant]
     Route: 048
  9. ASPIRIN [Concomitant]
     Route: 048
  10. OMEPRAL [Concomitant]
     Route: 048
  11. TEGRETOL [Concomitant]
     Route: 048
  12. LIVALO [Concomitant]
     Route: 048
  13. SYMMETREL [Concomitant]
     Route: 048
  14. MAGNESIUM OXIDE [Concomitant]
     Route: 048
  15. AMOBAN [Concomitant]
     Route: 048

REACTIONS (3)
  - CEREBRAL INFARCTION [None]
  - DEPRESSED LEVEL OF CONSCIOUSNESS [None]
  - URINARY TRACT INFECTION [None]
